FAERS Safety Report 19299882 (Version 1)
Quarter: 2021Q2

REPORT INFORMATION
  Report Type: Spontaneous
  Country: US (occurrence: US)
  Receive Date: 20210525
  Receipt Date: 20210525
  Transmission Date: 20210717
  Serious: No
  Sender: FDA-Public Use
  Company Number: US-TEVA-2021-US-1909678

PATIENT
  Sex: Male

DRUGS (7)
  1. MELATONIN [Concomitant]
     Active Substance: MELATONIN
  2. AUSTEDO [Suspect]
     Active Substance: DEUTETRABENAZINE
     Route: 048
     Dates: start: 20210223
  3. TYLENOL [Concomitant]
     Active Substance: ACETAMINOPHEN
  4. PROBIOTIC [Concomitant]
     Active Substance: PROBIOTICS NOS
  5. ZYRTEC [Concomitant]
     Active Substance: CETIRIZINE HYDROCHLORIDE
  6. MULTIVITAMIN [Concomitant]
     Active Substance: VITAMINS
  7. VITAMIN D3 [Concomitant]
     Active Substance: CHOLECALCIFEROL

REACTIONS (1)
  - Drug ineffective [Unknown]
